FAERS Safety Report 7334520-7 (Version None)
Quarter: 2011Q1

REPORT INFORMATION
  Report Type: 
  Country: None (occurrence: None)
  Receive Date: 20110307
  Receipt Date: 20110303
  Transmission Date: 20110831
  Serious: Yes (Hospitalization)
  Sender: FDA-Public Use
  Company Number: US-BRISTOL-MYERS SQUIBB COMPANY-15382815

PATIENT
  Age: 67 Year
  Sex: Male
  Weight: 75 kg

DRUGS (9)
  1. CARBOPLATIN [Suspect]
     Indication: NON-SMALL CELL LUNG CANCER
     Dosage: LAST DOSE:21SEP10 NO OF DAYS:82DAYS 1 DF:6AUC
     Route: 042
     Dates: start: 20100702, end: 20100921
  2. FENTANYL-100 [Concomitant]
     Indication: PAIN
     Dosage: ONGOING
     Dates: start: 20101012
  3. FOLIC ACID [Concomitant]
     Indication: PROPHYLAXIS
     Dates: start: 20100625
  4. DICLOFENAC [Concomitant]
     Indication: PAIN
     Dosage: ONGOING
     Dates: start: 20100615
  5. REGLAN [Concomitant]
     Indication: GASTROOESOPHAGEAL REFLUX DISEASE
     Dosage: ONGOING
     Dates: start: 20100725
  6. IMODIUM [Concomitant]
     Indication: DIARRHOEA
  7. PACLITAXEL [Suspect]
     Indication: NON-SMALL CELL LUNG CANCER
     Dosage: LAST DOSE:21SEP10 NO OF DAYS:82
     Route: 042
     Dates: start: 20100702, end: 20100921
  8. BEVACIZUMAB [Suspect]
     Indication: NON-SMALL CELL LUNG CANCER
     Route: 042
     Dates: start: 20100702, end: 20100702
  9. OMEPRAZOLE [Concomitant]
     Indication: GASTROOESOPHAGEAL REFLUX DISEASE

REACTIONS (11)
  - BLOOD UREA INCREASED [None]
  - SMALL INTESTINAL OBSTRUCTION [None]
  - DIVERTICULITIS [None]
  - NODULE [None]
  - HAEMOGLOBIN DECREASED [None]
  - METASTASES TO SMALL INTESTINE [None]
  - METASTATIC NEOPLASM [None]
  - CONDITION AGGRAVATED [None]
  - BLOOD SODIUM DECREASED [None]
  - HAEMATOCRIT DECREASED [None]
  - METASTASES TO PERITONEUM [None]
